FAERS Safety Report 24589993 (Version 1)
Quarter: 2024Q4

REPORT INFORMATION
  Report Type: Spontaneous
  Country: US (occurrence: None)
  Receive Date: 20241031
  Receipt Date: 20241031
  Transmission Date: 20250115
  Serious: Yes (unspecified)
  Sender: Public
  Company Number: None

PATIENT
  Age: 45 Year
  Weight: 46 kg

DRUGS (1)
  1. COSMETICS [Suspect]
     Active Substance: COSMETICS

REACTIONS (3)
  - Incorrect route of product administration [None]
  - Granuloma [None]
  - Off label use [None]

NARRATIVE: CASE EVENT DATE: 20241023
